FAERS Safety Report 21657202 (Version 3)
Quarter: 2023Q1

REPORT INFORMATION
  Report Type: Report from Study
  Country: US (occurrence: US)
  Receive Date: 20221129
  Receipt Date: 20230109
  Transmission Date: 20230417
  Serious: No
  Sender: FDA-Public Use
  Company Number: US-ABBVIE-4216387

PATIENT
  Age: 70 Year
  Sex: Male
  Weight: 61.234 kg

DRUGS (2)
  1. IMBRUVICA [Suspect]
     Active Substance: IBRUTINIB
     Indication: Lymphoma
     Dosage: FORM STRENGTH: 140 MILLIGRAM
     Route: 048
     Dates: start: 20200101
  2. IMBRUVICA [Suspect]
     Active Substance: IBRUTINIB
     Indication: Lymphoma
     Dosage: FORM STRENGTH: 280 MILLIGRAM
     Route: 048
     Dates: start: 202211

REACTIONS (4)
  - Peripheral swelling [Recovered/Resolved]
  - Peripheral swelling [Unknown]
  - Hypertension [Unknown]
  - Mass [Unknown]

NARRATIVE: CASE EVENT DATE: 20221101
